FAERS Safety Report 25037817 (Version 1)
Quarter: 2025Q1

REPORT INFORMATION
  Report Type: Other
  Country: US (occurrence: US)
  Receive Date: 20250304
  Receipt Date: 20250304
  Transmission Date: 20250408
  Serious: Yes (Life-Threatening, Other)
  Sender: Kanchan Healthcare
  Company Number: US-Kanchan Healthcare INC-2172192

PATIENT
  Age: 45 Year
  Sex: Female

DRUGS (12)
  1. CYCLOPHOSPHAMIDE [Suspect]
     Active Substance: CYCLOPHOSPHAMIDE
     Indication: T-cell type acute leukaemia
  2. VINCRISTINE SULFATE [Suspect]
     Active Substance: VINCRISTINE SULFATE
  3. DEXAMETHASONE [Concomitant]
     Active Substance: DEXAMETHASONE
  4. GRANULOCYTE COLONY-STIMULATING FACTOR NOS [Concomitant]
     Active Substance: GRANULOCYTE COLONY-STIMULATING FACTOR NOS
  5. DARATUMUMAB [Suspect]
     Active Substance: DARATUMUMAB
  6. BRENTUXIMAB VEDOTIN [Suspect]
     Active Substance: BRENTUXIMAB VEDOTIN
  7. NELARABINE [Suspect]
     Active Substance: NELARABINE
  8. IDARUBICIN HYDROCHLORIDE [Suspect]
     Active Substance: IDARUBICIN HYDROCHLORIDE
  9. CYTARABINE [Suspect]
     Active Substance: CYTARABINE
  10. FLUDARABINE [Suspect]
     Active Substance: FLUDARABINE PHOSPHATE
  11. VENETOCLAX [Suspect]
     Active Substance: VENETOCLAX
  12. DOXORUBICIN HYDROCHLORIDE [Suspect]
     Active Substance: DOXORUBICIN HYDROCHLORIDE

REACTIONS (4)
  - Peripheral sensory neuropathy [Unknown]
  - Diarrhoea [Unknown]
  - Neutropenia [Unknown]
  - Bacteraemia [Unknown]
